FAERS Safety Report 10755046 (Version 1)
Quarter: 2015Q1

REPORT INFORMATION
  Report Type: Spontaneous
  Country: US (occurrence: US)
  Receive Date: 20150202
  Receipt Date: 20150202
  Transmission Date: 20150721
  Serious: Yes (Hospitalization)
  Sender: FDA-Public Use
  Company Number: US-BAYER-2015-012855

PATIENT
  Sex: Male

DRUGS (4)
  1. FLEXERIL [Suspect]
     Active Substance: CYCLOBENZAPRINE HYDROCHLORIDE
     Indication: ILL-DEFINED DISORDER
     Dosage: 2 DOSES
     Route: 048
     Dates: start: 199602, end: 199602
  2. ALEVE [Suspect]
     Active Substance: NAPROXEN SODIUM
     Indication: BACK DISORDER
     Dosage: 200 MG, UNK
     Route: 048
     Dates: start: 19960222, end: 19960222
  3. CLARITIN [Suspect]
     Active Substance: LORATADINE
     Indication: HYPERSENSITIVITY
     Dosage: 10 MG, HS
     Route: 048
     Dates: start: 199601
  4. MARIHUANA [Concomitant]
     Dosage: UNK
     Route: 055
     Dates: start: 19960222, end: 19960222

REACTIONS (2)
  - Dyspnoea [Recovered/Resolved]
  - Sinus tachycardia [Recovered/Resolved]

NARRATIVE: CASE EVENT DATE: 19960222
